FAERS Safety Report 5662903-X (Version None)
Quarter: 2008Q1

REPORT INFORMATION
  Report Type: 
  Country: None (occurrence: None)
  Receive Date: 20080313
  Receipt Date: 20080305
  Transmission Date: 20080703
  Serious: Yes (Other)
  Sender: FDA-Public Use
  Company Number: US-ASTRAZENECA-2008UW04883

PATIENT
  Age: 65 Year
  Sex: Female

DRUGS (4)
  1. TAMOXIFEN [Suspect]
     Route: 048
     Dates: start: 20020101
  2. ACTONEL [Concomitant]
  3. NEXIUM [Concomitant]
     Route: 048
  4. OSCAL [Concomitant]

REACTIONS (1)
  - OVARIAN CYST [None]
